FAERS Safety Report 16217480 (Version 2)
Quarter: 2019Q3

REPORT INFORMATION
  Report Type: Report from Study
  Country: BR (occurrence: BR)
  Receive Date: 20190419
  Receipt Date: 20190927
  Transmission Date: 20191004
  Serious: Yes (Hospitalization, Other)
  Sender: FDA-Public Use
  Company Number: BR-JNJFOC-20190420902

PATIENT
  Age: 68 Year
  Sex: Male
  Weight: 70 kg

DRUGS (2)
  1. SIMPONI [Suspect]
     Active Substance: GOLIMUMAB
     Indication: PSORIATIC ARTHROPATHY
     Route: 058
     Dates: start: 20141111, end: 201904
  2. SIMPONI [Suspect]
     Active Substance: GOLIMUMAB
     Indication: PSORIASIS

REACTIONS (5)
  - Gastrointestinal neoplasm [Unknown]
  - Cardiac failure [Unknown]
  - Cardiomegaly [Unknown]
  - Enterostomy [Unknown]
  - Psoriasis [Unknown]

NARRATIVE: CASE EVENT DATE: 201901
